FAERS Safety Report 8913065 (Version 1)
Quarter: 2012Q4

REPORT INFORMATION
  Report Type: Spontaneous
  Country: GB (occurrence: None)
  Receive Date: 20121113
  Receipt Date: 20121113
  Transmission Date: 20130627
  Serious: Yes (Life-Threatening, Hospitalization, Other)
  Sender: FDA-Public Use
  Company Number: 2012P1062154

PATIENT
  Age: 15 Year
  Sex: Female

DRUGS (1)
  1. FENTANYL [Suspect]
     Indication: SUICIDE ATTEMPT
     Route: 062

REACTIONS (5)
  - Self-medication [None]
  - Apnoea [None]
  - Miosis [None]
  - Respiratory depression [None]
  - Depressed level of consciousness [None]
